FAERS Safety Report 20137111 (Version 5)
Quarter: 2022Q2

REPORT INFORMATION
  Report Type: Report from Study
  Country: US (occurrence: US)
  Receive Date: 20211201
  Receipt Date: 20220613
  Transmission Date: 20220721
  Serious: Yes (Other)
  Sender: FDA-Public Use
  Company Number: US-VERTEX PHARMACEUTICALS-2021-018491

PATIENT
  Age: 3 Year
  Sex: Male
  Weight: 15 kg

DRUGS (8)
  1. ELEXACAFTOR\IVACAFTOR\TEZACAFTOR [Suspect]
     Active Substance: ELEXACAFTOR\IVACAFTOR\TEZACAFTOR
     Indication: Cystic fibrosis
     Dosage: 1 PACKET (100MG ELEXA/50MG TEZA/75MG IVA) AM, 1 PACKET (75MG IVA) PM
     Route: 048
     Dates: start: 20210818, end: 20211222
  2. ALBUTEROL [Concomitant]
     Active Substance: ALBUTEROL
     Indication: Cystic fibrosis lung
     Dosage: 90 MCG/ INH, 2 PUFFS, PRN
     Dates: start: 20180318
  3. ALBUTEROL [Concomitant]
     Active Substance: ALBUTEROL
     Dosage: 2.5MG/ 3ML, BID
     Dates: start: 20180318
  4. CYPROHEPTADINE [Concomitant]
     Active Substance: CYPROHEPTADINE
     Indication: Weight gain poor
     Dosage: 7.5 MILLILITER (2MG/5ML),QHS
     Route: 048
     Dates: start: 20190308
  5. FLUTICASONE [Concomitant]
     Active Substance: FLUTICASONE
     Indication: Nasal congestion
     Dosage: 1 SPRAY, QD
     Route: 045
     Dates: start: 201901
  6. IPRATROPIUM [Concomitant]
     Active Substance: IPRATROPIUM
     Indication: Nasal congestion
     Dosage: 42MCG/ INH, 1 SPRAY, BID
     Route: 045
     Dates: start: 20181003
  7. PERTZYE [Concomitant]
     Active Substance: PANCRELIPASE AMYLASE\PANCRELIPASE LIPASE\PANCRELIPASE PROTEASE
     Indication: Pancreatic failure
     Dosage: 8000, 4 CAPS
     Route: 048
     Dates: start: 201810
  8. SODIUM CHLORIDE [Concomitant]
     Active Substance: SODIUM CHLORIDE
     Indication: Cystic fibrosis lung
     Dosage: 4ML, BID
     Dates: start: 202007

REACTIONS (3)
  - Urinary incontinence [Recovered/Resolved]
  - Abnormal behaviour [Recovered/Resolved]
  - Anal incontinence [Recovered/Resolved]

NARRATIVE: CASE EVENT DATE: 20211022
